FAERS Safety Report 22214432 (Version 1)
Quarter: 2023Q2

REPORT INFORMATION
  Report Type: Spontaneous
  Country: DE (occurrence: DE)
  Receive Date: 20230414
  Receipt Date: 20230414
  Transmission Date: 20230722
  Serious: Yes (Other)
  Sender: FDA-Public Use
  Company Number: DE-ANIPHARMA-2023-DE-000065

PATIENT
  Age: 76 Year
  Sex: Female
  Weight: 84 kg

DRUGS (6)
  1. CANDESARTAN CILEXETIL [Suspect]
     Active Substance: CANDESARTAN CILEXETIL
     Indication: Product used for unknown indication
     Dosage: 32 MG DAILY
     Route: 048
  2. METOPROLOL [Suspect]
     Active Substance: METOPROLOL
     Dosage: 47.5 MG DAILY
     Route: 048
  3. OLANZAPINE [Concomitant]
     Active Substance: OLANZAPINE
     Dosage: 2.5 MG DAILY
     Route: 048
  4. LEVOTHYROXINE [Concomitant]
     Active Substance: LEVOTHYROXINE
     Dosage: DOSE TEXT: UNK (DAILY) (1-0-0)
     Route: 048
  5. DULOXETINE [Suspect]
     Active Substance: DULOXETINE
     Dosage: 60 MG DAILY
     Route: 048
  6. CERTOPARIN SODIUM [Suspect]
     Active Substance: CERTOPARIN SODIUM
     Dosage: DOSE TEXT: UNK (3000 UNK, DAILY) / DOSE TEXT: UNK
     Route: 058

REACTIONS (4)
  - Dyspnoea [Unknown]
  - Pulmonary artery thrombosis [Unknown]
  - Pulmonary embolism [Recovered/Resolved]
  - Product substitution issue [Unknown]

NARRATIVE: CASE EVENT DATE: 20230303
